FAERS Safety Report 6783633-7 (Version None)
Quarter: 2010Q2

REPORT INFORMATION
  Report Type: 
  Country: None (occurrence: None)
  Receive Date: 20100622
  Receipt Date: 20100610
  Transmission Date: 20101027
  Serious: Yes (Hospitalization)
  Sender: FDA-Public Use
  Company Number: PHHY2010CA38319

PATIENT
  Sex: Female

DRUGS (2)
  1. ACLASTA [Suspect]
     Indication: OSTEOPOROSIS
     Dosage: UNK
     Route: 042
     Dates: start: 20090429
  2. ACLASTA [Suspect]
     Dosage: UNK
     Route: 042
     Dates: start: 20100520

REACTIONS (1)
  - FRACTURE [None]
